FAERS Safety Report 7504590-1 (Version None)
Quarter: 2011Q2

REPORT INFORMATION
  Report Type: 
  Country: None (occurrence: None)
  Receive Date: 20110525
  Receipt Date: 20110520
  Transmission Date: 20111010
  Serious: Yes (Life-Threatening)
  Sender: FDA-Public Use
  Company Number: JP-SANOFI-AVENTIS-2011SA031958

PATIENT
  Age: 93 Year
  Sex: Female
  Weight: 38.5 kg

DRUGS (5)
  1. FAMOTIDINE [Concomitant]
     Route: 048
     Dates: start: 20100330
  2. PLAVIX [Suspect]
     Dates: start: 20100330, end: 20100330
  3. ASPIRIN [Concomitant]
     Route: 048
     Dates: start: 20100330
  4. PLAVIX [Suspect]
     Dates: start: 20100331
  5. HEPARIN [Concomitant]
     Route: 042
     Dates: start: 20100330, end: 20100402

REACTIONS (2)
  - VENTRICULAR TACHYCARDIA [None]
  - CARDIOGENIC SHOCK [None]
